FAERS Safety Report 7020416-7 (Version None)
Quarter: 2010Q3

REPORT INFORMATION
  Report Type: 
  Country: None (occurrence: None)
  Receive Date: 20100927
  Receipt Date: 20100910
  Transmission Date: 20110219
  Serious: Yes (Hospitalization)
  Sender: FDA-Public Use
  Company Number: THQ2010A02648

PATIENT
  Age: 59 Year
  Sex: Female

DRUGS (10)
  1. PIOGLITAZONE HCL [Suspect]
     Indication: PRODUCT USED FOR UNKNOWN INDICATION
     Dosage: 15 MG
     Dates: start: 20090310
  2. BYETTA [Suspect]
     Indication: PRODUCT USED FOR UNKNOWN INDICATION
     Dosage: 10 MCG, 20 MCG
     Dates: start: 20070828
  3. METFORMIN HCL [Suspect]
     Indication: PRODUCT USED FOR UNKNOWN INDICATION
     Dosage: 2250 MG
     Dates: start: 20040201
  4. ASPIRIN [Concomitant]
  5. DIOVAN HCT [Concomitant]
  6. DIOVAN [Concomitant]
  7. MOXONIDIN (MOXONIDINE) [Concomitant]
  8. SIMVASTATIN [Concomitant]
  9. METFORMIN HYDROCHLORIDE [Concomitant]
  10. TOLTERODINE TARTRATE [Concomitant]

REACTIONS (1)
  - ROTATOR CUFF SYNDROME [None]
